FAERS Safety Report 13770590 (Version 1)
Quarter: 2017Q3

REPORT INFORMATION
  Report Type: Spontaneous
  Country: DE (occurrence: DE)
  Receive Date: 20170719
  Receipt Date: 20170719
  Transmission Date: 20171127
  Serious: Yes (Other)
  Sender: FDA-Public Use
  Company Number: DE-BAYER-2017-132858

PATIENT
  Sex: Female
  Weight: 72 kg

DRUGS (1)
  1. JAYDESS [Suspect]
     Active Substance: LEVONORGESTREL
     Dosage: 14 MCG/24HR, CONT
     Route: 015

REACTIONS (19)
  - Depressed level of consciousness [None]
  - Alopecia [None]
  - Visual impairment [None]
  - Respiratory rate decreased [None]
  - Chest discomfort [None]
  - Fatigue [None]
  - Dizziness [None]
  - Binge eating [None]
  - Anxiety [None]
  - Depressed mood [None]
  - Tachycardia [None]
  - Mood swings [None]
  - Nervousness [None]
  - Back pain [None]
  - Acne [None]
  - Visual field defect [None]
  - Hypoaesthesia [None]
  - Disturbance in attention [None]
  - Headache [None]
